FAERS Safety Report 5622977-9 (Version None)
Quarter: 2008Q1

REPORT INFORMATION
  Report Type: 
  Country: None (occurrence: None)
  Receive Date: 20080207
  Receipt Date: 20080201
  Transmission Date: 20080703
  Serious: Yes (Hospitalization)
  Sender: FDA-Public Use
  Company Number: 163-20785-07121453

PATIENT
  Age: 81 Year
  Sex: Female

DRUGS (3)
  1. THALOMID [Suspect]
     Indication: MULTIPLE MYELOMA
     Dosage: 100 MG, 1 IN 1 D, ORAL : 200 MG, 1 IN 1 D, ORAL
     Route: 048
     Dates: start: 20071212, end: 20071220
  2. THALOMID [Suspect]
     Indication: MULTIPLE MYELOMA
     Dosage: 100 MG, 1 IN 1 D, ORAL : 200 MG, 1 IN 1 D, ORAL
     Route: 048
     Dates: start: 20071227
  3. ZOMETA [Concomitant]

REACTIONS (5)
  - DRUG PRESCRIBING ERROR [None]
  - DYSKINESIA OESOPHAGEAL [None]
  - DYSPHAGIA [None]
  - INCORRECT DOSE ADMINISTERED [None]
  - OESOPHAGEAL SPASM [None]
